FAERS Safety Report 10771414 (Version 3)
Quarter: 2015Q2

REPORT INFORMATION
  Report Type: Report from Study
  Country: BE (occurrence: BE)
  Receive Date: 20150206
  Receipt Date: 20150603
  Transmission Date: 20150821
  Serious: Yes (Hospitalization)
  Sender: FDA-Public Use
  Company Number: BE-ABBVIE-14P-013-1192856-00

PATIENT
  Sex: Male

DRUGS (17)
  1. DUODOPA [Suspect]
     Active Substance: CARBIDOPA\LEVODOPA
     Dosage: AM DOSE=9ML, CD=3.8ML/H FOR 16HRS AND ED=2ML
     Route: 050
     Dates: start: 20131211, end: 201401
  2. DUODOPA [Suspect]
     Active Substance: CARBIDOPA\LEVODOPA
     Dosage: UNKNOWN
     Route: 050
     Dates: end: 20140618
  3. ALTIZIDE SPIRONOLACTONE RPG [Concomitant]
     Indication: PRODUCT USED FOR UNKNOWN INDICATION
  4. DUODOPA [Suspect]
     Active Substance: CARBIDOPA\LEVODOPA
     Dosage: AM DOSE=8.5ML/H, CD=3.7ML/H FOR 16HRS AND ED=1ML
     Route: 050
     Dates: start: 20131211, end: 20131211
  5. DUODOPA [Suspect]
     Active Substance: CARBIDOPA\LEVODOPA
     Dosage: AM DOSE: 8.5ML, CONTINU DOSE: 4ML/HR FOR 16HRS, EXTRA DOSE: 2ML
     Route: 050
     Dates: start: 20140115, end: 20140130
  6. DUODOPA [Suspect]
     Active Substance: CARBIDOPA\LEVODOPA
     Dosage: AM DOSE= 10ML, CONTIN DOSE= 4.1ML/H DURING 16HRS, EXTRA DOSE=3ML
     Route: 050
     Dates: start: 20140311, end: 20140406
  7. GLUCOPHAGE [Concomitant]
     Active Substance: METFORMIN HYDROCHLORIDE
     Indication: PRODUCT USED FOR UNKNOWN INDICATION
  8. UNI DIAMICRON [Concomitant]
     Active Substance: GLICLAZIDE
     Indication: PRODUCT USED FOR UNKNOWN INDICATION
  9. DUODOPA [Suspect]
     Active Substance: CARBIDOPA\LEVODOPA
     Dosage: AM DOSE=9ML, CD=4.0ML/H FOR 16HRS AND ED=2ML
     Route: 050
     Dates: start: 201401, end: 20140113
  10. DUODOPA [Suspect]
     Active Substance: CARBIDOPA\LEVODOPA
     Dosage: AM DOSE=9ML, CD=3.8ML/H FOR 16HRS AND ED=2ML
     Route: 050
     Dates: start: 20140113, end: 20140115
  11. DUODOPA [Suspect]
     Active Substance: CARBIDOPA\LEVODOPA
     Dosage: AM DOSE=9ML, CD=4ML/H FOR 16HRS AND ED=2ML
     Route: 050
     Dates: start: 20140618
  12. DUODOPA [Suspect]
     Active Substance: CARBIDOPA\LEVODOPA
     Route: 050
     Dates: start: 201406, end: 201412
  13. JANUVIA [Concomitant]
     Active Substance: SITAGLIPTIN PHOSPHATE
     Indication: PRODUCT USED FOR UNKNOWN INDICATION
  14. DUODOPA [Suspect]
     Active Substance: CARBIDOPA\LEVODOPA
     Dosage: AM = 10 ML, CONTIN DOSE = 4.3 ML/H DURING 16H, EXTRA DOSE = 3ML
     Route: 050
     Dates: start: 20140406
  15. DUODOPA [Suspect]
     Active Substance: CARBIDOPA\LEVODOPA
     Dosage: 1 TO 2 EXTRA DOSES PER DAY
     Route: 050
     Dates: start: 201412
  16. DUODOPA [Suspect]
     Active Substance: CARBIDOPA\LEVODOPA
     Indication: PARKINSON^S DISEASE
     Dosage: AM DOSE=8ML, CD=3.7ML/H FOR 16HRS AND ED=1ML
     Route: 050
     Dates: start: 20131209, end: 20131211
  17. DUODOPA [Suspect]
     Active Substance: CARBIDOPA\LEVODOPA
     Dosage: AM DOSE: 9ML, CONTINU DOSE: 4ML/HR FOR 16HRS, EXTRA DOSE: 3ML
     Route: 050
     Dates: start: 20140130, end: 20140311

REACTIONS (13)
  - Insomnia [Unknown]
  - Fall [Unknown]
  - Freezing phenomenon [Unknown]
  - Unevaluable event [Unknown]
  - Freezing phenomenon [Recovered/Resolved]
  - Excessive granulation tissue [Recovered/Resolved]
  - Drug ineffective [Unknown]
  - Fatigue [Unknown]
  - Freezing phenomenon [Recovering/Resolving]
  - Freezing phenomenon [Not Recovered/Not Resolved]
  - Asthenia [Unknown]
  - Device dislocation [Unknown]
  - Gait disturbance [Recovering/Resolving]
